FAERS Safety Report 6295386 (Version 3)
Quarter: 2016Q1

REPORT INFORMATION
  Report Type: Spontaneous
  Country: JP (occurrence: JP)
  Receive Date: 20070424
  Receipt Date: 20160202
  Transmission Date: 20160526
  Serious: Yes (Other)
  Sender: FDA-Public Use
  Company Number: JP-BRISTOL-MYERS SQUIBB COMPANY-13755863

PATIENT
  Age: 38 Year
  Sex: Male

DRUGS (1)
  1. ENTECAVIR. [Suspect]
     Active Substance: ENTECAVIR
     Indication: CHRONIC HEPATITIS B
     Dosage: AT 24 WEEKS OF ENTECAVIR, THE DOSE WAS INCREASED TO 0.5 MG/ DAILY
     Route: 048

REACTIONS (2)
  - Drug resistance [Unknown]
  - Viral load increased [Unknown]

NARRATIVE: CASE EVENT DATE: 2004
